FAERS Safety Report 8056477-6 (Version None)
Quarter: 2011Q4

REPORT INFORMATION
  Report Type: 
  Country: None (occurrence: None)
  Receive Date: 20111219
  Receipt Date: 20110927
  Transmission Date: 20120403
  Serious: Yes (Other)
  Sender: FDA-Public Use
  Company Number: WAES 1109USA03411

PATIENT
  Sex: Female

DRUGS (2)
  1. ZETIA [Concomitant]
  2. JANUVIA [Suspect]
     Dosage: 25 MG/PO
     Route: 048

REACTIONS (1)
  - PANCREATITIS [None]
